FAERS Safety Report 14961972 (Version 2)
Quarter: 2018Q4

REPORT INFORMATION
  Report Type: Spontaneous
  Country: US (occurrence: US)
  Receive Date: 20180601
  Receipt Date: 20181003
  Transmission Date: 20190204
  Serious: No
  Sender: FDA-Public Use
  Company Number: PHEH2018US021178

PATIENT
  Sex: Female

DRUGS (5)
  1. IBRANCE [Suspect]
     Active Substance: PALBOCICLIB
     Indication: BREAST CANCER
     Dosage: 75 MG, QD
     Route: 048
     Dates: start: 20180420
  2. EXEMESTANE. [Suspect]
     Active Substance: EXEMESTANE
     Dosage: 25 MG, QD
     Route: 048
     Dates: start: 20180420
  3. CAPECITABINE. [Suspect]
     Active Substance: CAPECITABINE
     Indication: BREAST CANCER
     Dosage: 500 MG, BID
     Route: 048
     Dates: start: 20180806
  4. EXEMESTANE. [Suspect]
     Active Substance: EXEMESTANE
     Indication: BREAST CANCER
     Dosage: 25 MG, QD
     Route: 048
     Dates: start: 20180426
  5. AFINITOR [Suspect]
     Active Substance: EVEROLIMUS
     Indication: BREAST CANCER
     Dosage: 5 MG, QD
     Route: 048
     Dates: start: 20180426, end: 20180823

REACTIONS (5)
  - Throat irritation [Unknown]
  - Stress [Unknown]
  - White blood cell count decreased [Unknown]
  - Pharyngitis [Unknown]
  - Oropharyngeal pain [Unknown]
